FAERS Safety Report 23011692 (Version 2)
Quarter: 2023Q4

REPORT INFORMATION
  Report Type: Spontaneous
  Country: JP (occurrence: JP)
  Receive Date: 20230929
  Receipt Date: 20231025
  Transmission Date: 20240110
  Serious: Yes (Hospitalization, Other)
  Sender: FDA-Public Use
  Company Number: JP-GLAXOSMITHKLINE-JP2023JPN131945

PATIENT

DRUGS (11)
  1. LAMICTAL [Suspect]
     Active Substance: LAMOTRIGINE
     Dosage: 100 MG, QD
  2. LAMICTAL [Suspect]
     Active Substance: LAMOTRIGINE
     Dosage: 2800 MG
  3. METFORMIN HYDROCHLORIDE [Suspect]
     Active Substance: METFORMIN HYDROCHLORIDE
     Dosage: 1000 MG, QD
  4. METFORMIN HYDROCHLORIDE [Suspect]
     Active Substance: METFORMIN HYDROCHLORIDE
     Dosage: 27500 MG
  5. VOGLIBOSE [Suspect]
     Active Substance: VOGLIBOSE
     Dosage: 0.9 MG, QD
  6. VOGLIBOSE [Suspect]
     Active Substance: VOGLIBOSE
     Dosage: 25.5 MG
  7. ROSUVASTATIN CALCIUM [Suspect]
     Active Substance: ROSUVASTATIN CALCIUM
     Dosage: 5 MG, QD
  8. ROSUVASTATIN CALCIUM [Suspect]
     Active Substance: ROSUVASTATIN CALCIUM
     Dosage: 60 MG
  9. SERTRALINE HYDROCHLORIDE [Suspect]
     Active Substance: SERTRALINE HYDROCHLORIDE
     Dosage: 100 MG, QD
  10. SERTRALINE HYDROCHLORIDE [Suspect]
     Active Substance: SERTRALINE HYDROCHLORIDE
     Dosage: 700 MG
  11. BIPERIDEN [Suspect]
     Active Substance: BIPERIDEN
     Dosage: 14 MG

REACTIONS (13)
  - Altered state of consciousness [Unknown]
  - Vomiting [Unknown]
  - Suicide attempt [Unknown]
  - Respiratory failure [Unknown]
  - Hyperhidrosis [Unknown]
  - Lactic acidosis [Recovering/Resolving]
  - Shock [Unknown]
  - Acute kidney injury [Unknown]
  - Dyspnoea [Unknown]
  - Acidosis [Unknown]
  - Hypotension [Unknown]
  - Haemodynamic instability [Unknown]
  - Intentional overdose [Unknown]
